FAERS Safety Report 14109970 (Version 2)
Quarter: 2017Q4

REPORT INFORMATION
  Report Type: Spontaneous
  Country: EC (occurrence: EC)
  Receive Date: 20171020
  Receipt Date: 20171123
  Transmission Date: 20180321
  Serious: Yes (Hospitalization, Other)
  Sender: FDA-Public Use
  Company Number: EC-AMGEN-ECUSP2017155903

PATIENT
  Age: 33 Year
  Sex: Male
  Weight: 60 kg

DRUGS (5)
  1. VINCRISTINE [Suspect]
     Active Substance: VINCRISTINE
     Indication: LYMPHOMA
     Dosage: 0.4 MG/M2, QD
     Route: 042
     Dates: start: 20170825, end: 20170828
  2. ETOPOSIDE. [Suspect]
     Active Substance: ETOPOSIDE
     Indication: LYMPHOMA
     Dosage: 50 MG/M2, QD
     Route: 042
     Dates: start: 20170825, end: 20170828
  3. DOXORUBICIN [Suspect]
     Active Substance: DOXORUBICIN
     Indication: LYMPHOMA
     Dosage: 10 MG/M2, QD
     Route: 042
     Dates: start: 20170825, end: 20170828
  4. CYCLOPHOSPHAMIDE. [Suspect]
     Active Substance: CYCLOPHOSPHAMIDE
     Indication: LYMPHOMA
     Dosage: 750 MG/M2, ONE TIME DOSE
     Route: 042
     Dates: start: 20170829, end: 20170829
  5. NEULASTIM [Suspect]
     Active Substance: PEGFILGRASTIM
     Indication: PROPHYLAXIS
     Dosage: 6 MG, ONLY ONCE
     Route: 058
     Dates: start: 20170830, end: 20170830

REACTIONS (4)
  - Neutropenia [Recovered/Resolved]
  - Sphingomonas paucimobilis infection [Unknown]
  - Fungal infection [Unknown]
  - Drug ineffective [Not Recovered/Not Resolved]

NARRATIVE: CASE EVENT DATE: 201709
